FAERS Safety Report 9695879 (Version 1)
Quarter: 2013Q4

REPORT INFORMATION
  Report Type: Spontaneous
  Country: US (occurrence: None)
  Receive Date: 20131118
  Receipt Date: 20131118
  Transmission Date: 20140711
  Serious: Yes (Life-Threatening, Disabling, Other)
  Sender: FDA-Public Use
  Company Number: None

PATIENT
  Age: 43 Year
  Sex: Female
  Weight: 72.58 kg

DRUGS (1)
  1. LEVAQUIN [Suspect]
     Indication: URINARY TRACT INFECTION
     Dosage: 10 PILLS ONCE DAILY TAKEN BY MOUTH
     Route: 048
     Dates: start: 20120307, end: 20120316

REACTIONS (10)
  - Joint swelling [None]
  - Hypersensitivity [None]
  - Depression [None]
  - Poisoning [None]
  - Pain [None]
  - Tendonitis [None]
  - Tendon rupture [None]
  - Plantar fasciitis [None]
  - Neuropathy peripheral [None]
  - Depression [None]
